FAERS Safety Report 16995260 (Version 8)
Quarter: 2020Q2

REPORT INFORMATION
  Report Type: Report from Study
  Country: CO (occurrence: CO)
  Receive Date: 20191105
  Receipt Date: 20200508
  Transmission Date: 20200713
  Serious: Yes (Hospitalization)
  Sender: FDA-Public Use
  Company Number: CO-SA-2019SA303444

PATIENT
  Age: 50 Year
  Sex: Male

DRUGS (2)
  1. ALEMTUZUMAB [Suspect]
     Active Substance: ALEMTUZUMAB
     Indication: MULTIPLE SCLEROSIS
     Dosage: 12 MG, 1X
     Route: 041
     Dates: start: 20191023, end: 20191023
  2. ALEMTUZUMAB [Suspect]
     Active Substance: ALEMTUZUMAB
     Dosage: UNK
     Route: 041

REACTIONS (11)
  - Tachycardia [Recovered/Resolved]
  - Blood pressure increased [Recovered/Resolved]
  - Dysarthria [Recovered/Resolved]
  - Blood creatinine decreased [Not Recovered/Not Resolved]
  - Red blood cells urine positive [Not Recovered/Not Resolved]
  - Leukocyturia [Not Recovered/Not Resolved]
  - Vision blurred [Recovered/Resolved]
  - Nitrite urine present [Not Recovered/Not Resolved]
  - Lymphocyte count decreased [Not Recovered/Not Resolved]
  - Asthenia [Recovered/Resolved]
  - Bacteriuria [Not Recovered/Not Resolved]

NARRATIVE: CASE EVENT DATE: 20191023
